FAERS Safety Report 15560068 (Version 3)
Quarter: 2018Q4

REPORT INFORMATION
  Report Type: Report from Study
  Country: US (occurrence: US)
  Receive Date: 20181029
  Receipt Date: 20181126
  Transmission Date: 20190205
  Serious: Yes (Hospitalization)
  Sender: FDA-Public Use
  Company Number: US-ROCHE-2205814

PATIENT
  Age: 60 Year
  Sex: Female
  Weight: 92.16 kg

DRUGS (2)
  1. ATEZOLIZUMAB. [Suspect]
     Active Substance: ATEZOLIZUMAB
     Indication: BREAST CANCER METASTATIC
     Route: 042
     Dates: start: 20181018, end: 20181018
  2. CARBOPLATIN. [Suspect]
     Active Substance: CARBOPLATIN
     Indication: BREAST CANCER METASTATIC
     Route: 042
     Dates: start: 20181018, end: 20181018

REACTIONS (3)
  - Hypoxia [Recovered/Resolved]
  - Atrial fibrillation [Recovered/Resolved]
  - Tachycardia [Recovering/Resolving]

NARRATIVE: CASE EVENT DATE: 20181020
